FAERS Safety Report 23060138 (Version 1)
Quarter: 2023Q4

REPORT INFORMATION
  Report Type: Report from Study
  Country: GB (occurrence: GB)
  Receive Date: 20231012
  Receipt Date: 20231012
  Transmission Date: 20240109
  Serious: Yes (Hospitalization, Other)
  Sender: FDA-Public Use
  Company Number: GB-SANDOZ-SDZ2023GB012162

PATIENT
  Sex: Female

DRUGS (1)
  1. ERELZI [Suspect]
     Active Substance: ETANERCEPT-SZZS
     Indication: Spinal osteoarthritis
     Dosage: 50 MG, EOW
     Route: 058

REACTIONS (3)
  - Upper limb fracture [Unknown]
  - Fall [Unknown]
  - Product use in unapproved indication [Unknown]
